FAERS Safety Report 8535469-4 (Version None)
Quarter: 2012Q3

REPORT INFORMATION
  Report Type: 
  Country: None (occurrence: None)
  Receive Date: 20120718
  Receipt Date: 20120718
  Transmission Date: 20120928
  Serious: Yes (Disabling)
  Sender: FDA-Public Use
  Company Number: None

PATIENT
  Sex: Male
  Weight: 96.1626 kg

DRUGS (4)
  1. JANUVIA [Suspect]
     Indication: DIABETES MELLITUS
     Dosage: 50 MG 1X DAILY ORAL
     Route: 048
     Dates: start: 20090101, end: 20120101
  2. FUROSEMIDE [Concomitant]
  3. ACE INHIBITOR [Concomitant]
  4. ALDARONE [Concomitant]

REACTIONS (1)
  - PANCREATITIS [None]
